FAERS Safety Report 15905938 (Version 1)
Quarter: 2019Q1

REPORT INFORMATION
  Report Type: Spontaneous
  Country: US (occurrence: US)
  Receive Date: 20190202
  Receipt Date: 20190202
  Transmission Date: 20190417
  Serious: Yes (Hospitalization, Disabling)
  Sender: FDA-Public Use
  Company Number: None

PATIENT
  Age: 30 Year
  Sex: Male
  Weight: 96.75 kg

DRUGS (2)
  1. CIPROFLOXACIN HCL 500 MG TAB [Suspect]
     Active Substance: CIPROFLOXACIN HYDROCHLORIDE
     Indication: PROSTATITIS
     Dosage: ?          QUANTITY:14 TABLET(S);?
     Route: 048
     Dates: start: 20190110, end: 20190115
  2. BUSPAR [Concomitant]
     Active Substance: BUSPIRONE HYDROCHLORIDE

REACTIONS (7)
  - Feeling abnormal [None]
  - Cardiac flutter [None]
  - Vision blurred [None]
  - Heart rate irregular [None]
  - Dizziness [None]
  - Syncope [None]
  - Confusional state [None]

NARRATIVE: CASE EVENT DATE: 20190117
